FAERS Safety Report 9341452 (Version 2)
Quarter: 2013Q2

REPORT INFORMATION
  Report Type: Spontaneous
  Country: JP (occurrence: JP)
  Receive Date: 20130611
  Receipt Date: 20130625
  Transmission Date: 20140414
  Serious: No
  Sender: FDA-Public Use
  Company Number: JP-ELI_LILLY_AND_COMPANY-JP201305009666

PATIENT
  Age: 70 Year
  Sex: Female
  Weight: 57 kg

DRUGS (9)
  1. FORTEO [Suspect]
     Indication: OSTEOPOROSIS
     Dosage: 20 UG, QD
     Route: 058
     Dates: start: 20130529, end: 20130529
  2. BUFFERIN                                /JPN/ [Concomitant]
  3. METHYCOBAL [Concomitant]
     Dosage: 500 DF, TID
     Route: 048
     Dates: start: 20130312
  4. JUVELA N [Concomitant]
     Dosage: 200 MG, TID
     Route: 048
     Dates: start: 20130312
  5. LOXONIN [Concomitant]
     Dosage: 1 DF, TID
     Route: 048
     Dates: start: 20130412
  6. LOXONIN [Concomitant]
     Dosage: UNK, PRN
     Route: 048
  7. SEFTAC [Concomitant]
     Dosage: 1 DF, TID
     Route: 048
     Dates: start: 20130412
  8. SEFTAC [Concomitant]
     Dosage: UNK, PRN
     Route: 048
  9. SARPOGRELATE [Concomitant]
     Route: 048

REACTIONS (3)
  - Anaphylactoid reaction [Recovered/Resolved]
  - Feeling abnormal [Recovered/Resolved]
  - Back pain [Recovered/Resolved]
